FAERS Safety Report 5422668-3 (Version None)
Quarter: 2007Q3

REPORT INFORMATION
  Report Type: 
  Country: None (occurrence: None)
  Receive Date: 20070822
  Receipt Date: 20070814
  Transmission Date: 20080115
  Serious: Yes (Other)
  Sender: FDA-Public Use
  Company Number: US-ABBOTT-07P-163-0378105-00

PATIENT
  Age: 47 Year
  Sex: Male

DRUGS (2)
  1. ACETAMINOPHEN AND HYDROCODONE BITARTRATE [Suspect]
     Indication: DRUG USE FOR UNKNOWN INDICATION
     Dosage: UNKNOWN
  2. ACETAMINOPHEN AND HYDROCODONE BITARTRATE [Suspect]
     Indication: INTENTIONAL DRUG MISUSE

REACTIONS (2)
  - DEAFNESS NEUROSENSORY [None]
  - TINNITUS [None]
